FAERS Safety Report 10691259 (Version 3)
Quarter: 2015Q1

REPORT INFORMATION
  Report Type: Report from Study
  Country: FR (occurrence: FR)
  Receive Date: 20150105
  Receipt Date: 20150122
  Transmission Date: 20150720
  Serious: Yes (Death, Hospitalization, Other)
  Sender: FDA-Public Use
  Company Number: FR-BAYER-2014-142533

PATIENT
  Age: 65 Year
  Sex: Male
  Weight: 61 kg

DRUGS (10)
  1. CA [ASCORBIC ACID,CALCIUM CARBONATE] [Concomitant]
     Indication: PROPHYLAXIS
     Dosage: 2 BAG QD
     Route: 048
     Dates: start: 2012, end: 20140922
  2. MACROGOL [Concomitant]
     Active Substance: POLYETHYLENE GLYCOLS
     Indication: CONSTIPATION
     Dosage: 10 G, BID
     Route: 048
     Dates: start: 20140401, end: 20140922
  3. PARACETAMOL [Concomitant]
     Active Substance: ACETAMINOPHEN
     Indication: TUMOUR PAIN
     Dosage: 2 G, BID
     Route: 048
     Dates: start: 20140801, end: 20140922
  4. PROPANOLOL [Concomitant]
     Active Substance: PROPRANOLOL HYDROCHLORIDE
     Indication: HYPERTENSION
     Dosage: 40 MG, QD
     Route: 048
     Dates: start: 2000, end: 20140922
  5. OXYNORM [Concomitant]
     Active Substance: OXYCODONE HYDROCHLORIDE
     Indication: TUMOUR PAIN
     Dosage: 5 MG, BID
     Route: 048
     Dates: start: 20140907, end: 20140922
  6. REGORAFENIB [Suspect]
     Active Substance: REGORAFENIB
     Indication: HEPATOCELLULAR CARCINOMA
     Dosage: 160 MG, QD
     Route: 048
     Dates: start: 20140915, end: 20140921
  7. OXYCONTIN [Concomitant]
     Active Substance: OXYCODONE HYDROCHLORIDE
     Indication: TUMOUR PAIN
     Dosage: 10 MG, BID
     Route: 048
     Dates: start: 20140401, end: 20140922
  8. REGORAFENIB [Suspect]
     Active Substance: REGORAFENIB
     Indication: HEPATOCELLULAR CARCINOMA
     Dosage: 160 MG, QD
     Route: 048
     Dates: start: 20140818, end: 20140908
  9. OMEPRAZOL [Concomitant]
     Active Substance: OMEPRAZOLE
     Indication: GASTRITIS PROPHYLAXIS
     Dosage: 20 MG, QD
     Route: 048
     Dates: start: 2000, end: 20140922
  10. BICARBONAT [Concomitant]
     Indication: PROPHYLAXIS
     Dosage: 4 MOUTHWASH QD
     Route: 048
     Dates: start: 2003, end: 20140918

REACTIONS (2)
  - Lung infection [Fatal]
  - Sepsis [Not Recovered/Not Resolved]

NARRATIVE: CASE EVENT DATE: 20140919
